FAERS Safety Report 10152370 (Version 1)
Quarter: 2014Q2

REPORT INFORMATION
  Report Type: Report from Study
  Country: US (occurrence: US)
  Receive Date: 20140505
  Receipt Date: 20140505
  Transmission Date: 20141212
  Serious: Yes (Other)
  Sender: FDA-Public Use
  Company Number: US-BAYER-2014-063149

PATIENT
  Sex: Female

DRUGS (2)
  1. MIRENA [Suspect]
     Indication: CONTRACEPTION
     Dosage: 20 MCG/24HR, CONT
  2. NUVARING [Suspect]

REACTIONS (4)
  - Loss of consciousness [None]
  - Genital haemorrhage [None]
  - Genital haemorrhage [None]
  - Migraine [None]
